FAERS Safety Report 23626185 (Version 1)
Quarter: 2024Q1

REPORT INFORMATION
  Report Type: Other
  Country: GB (occurrence: GB)
  Receive Date: 20240313
  Receipt Date: 20240313
  Transmission Date: 20240410
  Serious: Yes (Hospitalization)
  Sender: FDA-Public Use
  Company Number: GB-ALSI-2024000087

PATIENT
  Age: 29 Year
  Sex: Female

DRUGS (1)
  1. NITROUS OXIDE [Suspect]
     Active Substance: NITROUS OXIDE

REACTIONS (3)
  - Subacute combined cord degeneration [Unknown]
  - Urinary retention [Unknown]
  - Vitamin B12 deficiency [Unknown]
